FAERS Safety Report 10602464 (Version 1)
Quarter: 2014Q4

REPORT INFORMATION
  Report Type: Spontaneous
  Country: FR (occurrence: FR)
  Receive Date: 20141124
  Receipt Date: 20141124
  Transmission Date: 20150529
  Serious: Yes (Hospitalization, Other)
  Sender: FDA-Public Use
  Company Number: FR-TEVA-522874ISR

PATIENT
  Age: 74 Year
  Sex: Female

DRUGS (5)
  1. DOMPERIDONE [Interacting]
     Active Substance: DOMPERIDONE
     Dosage: 3 DOSAGE FORMS DAILY;
     Route: 048
  2. EXELON [Suspect]
     Active Substance: RIVASTIGMINE TARTRATE
     Indication: DEMENTIA WITH LEWY BODIES
     Dosage: 4.6 MILLIGRAM DAILY;
     Route: 062
  3. CARBIDOPA LEVODOPA TEVA 10MG/100MG [Suspect]
     Active Substance: CARBIDOPA\LEVODOPA
     Indication: DEMENTIA WITH LEWY BODIES
     Dosage: 200 MILLIGRAM DAILY;
     Route: 048
  4. IXPRIM [Concomitant]
     Active Substance: ACETAMINOPHEN\TRAMADOL HYDROCHLORIDE
  5. PREVISCAN [Concomitant]
     Active Substance: FLUINDIONE

REACTIONS (5)
  - Fall [Recovered/Resolved]
  - Drug interaction [Unknown]
  - Extrapyramidal disorder [Recovered/Resolved]
  - Dysstasia [Unknown]
  - Groin pain [Unknown]

NARRATIVE: CASE EVENT DATE: 20141102
